FAERS Safety Report 22387315 (Version 1)
Quarter: 2023Q2

REPORT INFORMATION
  Report Type: Spontaneous
  Country: US (occurrence: US)
  Receive Date: 20230531
  Receipt Date: 20230531
  Transmission Date: 20230721
  Serious: No
  Sender: FDA-Public Use
  Company Number: US-GLAXOSMITHKLINE-USCH2023025798

PATIENT

DRUGS (1)
  1. VOLTAREN ARTHRITIS PAIN [Suspect]
     Active Substance: DICLOFENAC SODIUM
     Indication: Spinal cord injury
     Dosage: UNK

REACTIONS (4)
  - Burning sensation [Unknown]
  - Swelling [Unknown]
  - Pain [Unknown]
  - Off label use [Unknown]
